FAERS Safety Report 7450946-5 (Version None)
Quarter: 2011Q2

REPORT INFORMATION
  Report Type: 
  Country: None (occurrence: None)
  Receive Date: 20110502
  Receipt Date: 20110426
  Transmission Date: 20111010
  Serious: Yes (Hospitalization)
  Sender: FDA-Public Use
  Company Number: JP-ROCHE-724200

PATIENT
  Sex: Female
  Weight: 42.4 kg

DRUGS (8)
  1. PEGASYS [Suspect]
     Route: 058
     Dates: start: 20100309, end: 20100813
  2. SLOW-K [Concomitant]
     Route: 048
     Dates: start: 20100309, end: 20100321
  3. GOODMIN [Concomitant]
     Route: 048
     Dates: start: 20100501
  4. LAC-B [Concomitant]
     Route: 048
     Dates: start: 20100309, end: 20100321
  5. GASMOTIN [Concomitant]
     Route: 048
     Dates: start: 20100315, end: 20100809
  6. COPEGUS [Suspect]
     Dosage: DOSE REPORTED AS: 400 MG DAILY (DIVIDED INTO 2 DOSES).
     Route: 048
     Dates: start: 20100309, end: 20100813
  7. NEOMALLERMIN-TR [Concomitant]
     Dosage: SINGLE USE
     Route: 048
     Dates: start: 20100601, end: 20100701
  8. PROMAC [Concomitant]
     Route: 048
     Dates: start: 20100629, end: 20100813

REACTIONS (1)
  - RENAL ABSCESS [None]
